FAERS Safety Report 6753115-7 (Version None)
Quarter: 2010Q2

REPORT INFORMATION
  Report Type: 
  Country: None (occurrence: None)
  Receive Date: 20100603
  Receipt Date: 20100525
  Transmission Date: 20101027
  Serious: Yes (Death)
  Sender: FDA-Public Use
  Company Number: JP-PFIZER INC-2010066507

PATIENT
  Age: 60 Year
  Sex: Male

DRUGS (1)
  1. SUNITINIB MALATE [Suspect]
     Indication: RENAL CANCER
     Dosage: 25 MG, UNK
     Route: 048
     Dates: start: 20100401

REACTIONS (3)
  - DISSEMINATED INTRAVASCULAR COAGULATION [None]
  - HEPATITIS FULMINANT [None]
  - MULTI-ORGAN FAILURE [None]
